FAERS Safety Report 4808169-1 (Version None)
Quarter: 2005Q4

REPORT INFORMATION
  Report Type: 
  Country: None (occurrence: None)
  Receive Date: 20051020
  Receipt Date: 20051011
  Transmission Date: 20060501
  Serious: Yes (Other)
  Sender: FDA-Public Use
  Company Number: 2005-05-0988

PATIENT
  Age: 72 Year
  Sex: Female
  Weight: 59 kg

DRUGS (8)
  1. PEG-INTRON (PEGINTERFERON ALFA-2B) [Suspect]
     Indication: HEPATITIS C
     Dosage: 80MCG QW-UNK* SUBCUTANEOUS
     Route: 058
     Dates: start: 20050303, end: 20050101
  2. PEG-INTRON (PEGINTERFERON ALFA-2B) [Suspect]
     Indication: HEPATITIS C
     Dosage: 80MCG QW-UNK* SUBCUTANEOUS
     Route: 058
     Dates: start: 20050101
  3. REBETOL [Suspect]
     Indication: HEPATITIS C
     Dosage: 600 MG-UNK* ORAL
     Route: 048
     Dates: start: 20050303, end: 20050101
  4. REBETOL [Suspect]
     Indication: HEPATITIS C
     Dosage: 600 MG-UNK* ORAL
     Route: 048
     Dates: start: 20050101
  5. PEGASYS [Suspect]
     Dates: end: 20050303
  6. AMLODIPINE BESILATE TABLETS [Concomitant]
  7. ACARBOSE TABLETS [Concomitant]
  8. STRONGER NEO MINOPHAGEN C INJECTABLE [Concomitant]

REACTIONS (9)
  - ANAEMIA [None]
  - DRUG INEFFECTIVE [None]
  - ERYTHEMA [None]
  - INJECTION SITE ERYTHEMA [None]
  - INJECTION SITE REACTION [None]
  - INJECTION SITE ULCER [None]
  - PURULENCE [None]
  - RASH PAPULAR [None]
  - SKIN DISORDER [None]
